FAERS Safety Report 6274786-8 (Version None)
Quarter: 2009Q3

REPORT INFORMATION
  Report Type: 
  Country: None (occurrence: None)
  Receive Date: 20090721
  Receipt Date: 20090710
  Transmission Date: 20100115
  Serious: Yes (Hospitalization)
  Sender: FDA-Public Use
  Company Number: DE-JNJFOC-20090501731

PATIENT
  Age: 76 Year
  Sex: Female
  Weight: 51 kg

DRUGS (36)
  1. GOLIMUMAB [Suspect]
     Route: 058
  2. GOLIMUMAB [Suspect]
     Route: 058
  3. GOLIMUMAB [Suspect]
     Route: 058
  4. GOLIMUMAB [Suspect]
     Route: 058
  5. GOLIMUMAB [Suspect]
     Route: 058
  6. GOLIMUMAB [Suspect]
     Route: 058
  7. GOLIMUMAB [Suspect]
     Route: 058
  8. GOLIMUMAB [Suspect]
     Route: 058
  9. GOLIMUMAB [Suspect]
     Route: 058
  10. GOLIMUMAB [Suspect]
     Route: 058
  11. GOLIMUMAB [Suspect]
     Route: 058
  12. GOLIMUMAB [Suspect]
     Route: 058
  13. GOLIMUMAB [Suspect]
     Route: 058
  14. GOLIMUMAB [Suspect]
     Route: 058
  15. GOLIMUMAB [Suspect]
     Route: 058
  16. GOLIMUMAB [Suspect]
     Route: 058
  17. GOLIMUMAB [Suspect]
     Route: 058
  18. GOLIMUMAB [Suspect]
     Route: 058
  19. GOLIMUMAB [Suspect]
     Route: 058
  20. GOLIMUMAB [Suspect]
     Route: 058
  21. GOLIMUMAB [Suspect]
     Route: 058
  22. GOLIMUMAB [Suspect]
     Route: 058
  23. GOLIMUMAB [Suspect]
     Route: 058
  24. GOLIMUMAB [Suspect]
     Indication: RHEUMATOID ARTHRITIS
     Dosage: WEEK 16
     Route: 058
  25. PLACEBO [Suspect]
     Route: 058
  26. PLACEBO [Suspect]
     Route: 058
  27. PLACEBO [Suspect]
     Route: 058
  28. PLACEBO [Suspect]
     Indication: RHEUMATOID ARTHRITIS
     Route: 058
  29. ACTONEL [Concomitant]
     Route: 048
  30. FOLSAN [Concomitant]
     Route: 048
  31. PANTOZOL [Concomitant]
     Route: 048
  32. MTX [Concomitant]
     Route: 048
  33. NAPROXEN [Concomitant]
     Route: 048
  34. IBUPROFEN [Concomitant]
     Route: 048
  35. PREDNISON [Concomitant]
     Route: 048
  36. TRAMADOL HCL [Concomitant]
     Route: 048

REACTIONS (1)
  - PULMONARY TUBERCULOSIS [None]
